FAERS Safety Report 7386971-2 (Version None)
Quarter: 2011Q1

REPORT INFORMATION
  Report Type: 
  Country: None (occurrence: None)
  Receive Date: 20110331
  Receipt Date: 20110324
  Transmission Date: 20110831
  Serious: Yes (Hospitalization)
  Sender: FDA-Public Use
  Company Number: US-GILEAD-2010-0032712

PATIENT
  Sex: Female
  Weight: 74.002 kg

DRUGS (31)
  1. ACTONEL [Concomitant]
  2. AF-TUSSIN [Concomitant]
  3. CYMBALTA [Concomitant]
  4. ATROVENT [Concomitant]
  5. VITAMIN D [Concomitant]
  6. GAS-X [Concomitant]
  7. LETAIRIS [Suspect]
     Indication: PULMONARY ARTERIAL HYPERTENSION
     Dates: end: 20101001
  8. ADVAIR DISKUS 100/50 [Concomitant]
  9. HYDROCODONE BITARTRATE [Concomitant]
  10. CARTIA XT [Concomitant]
  11. SYNTHROID [Concomitant]
  12. COUMADIN [Concomitant]
  13. LIPITOR [Concomitant]
  14. PULMICORT [Concomitant]
  15. ZOVIRAX [Concomitant]
  16. FERROUS SULFATE TAB [Concomitant]
  17. BENAZEPRIL HYDROCHLORIDE [Concomitant]
  18. GREEN TEA [Concomitant]
  19. DULCOLAX [Concomitant]
  20. PRIMIDONE [Concomitant]
  21. ACIPHEX [Concomitant]
  22. KLOR-CON [Concomitant]
  23. AUGMENTIN [Concomitant]
  24. PHENERGAN W/ CODEINE [Concomitant]
  25. ALBUTEROL [Concomitant]
  26. LACTULOSE [Concomitant]
  27. PROMETHAZINE [Concomitant]
  28. LORAZEPAM [Concomitant]
  29. FUROSEMIDE [Concomitant]
  30. CREON [Concomitant]
  31. NITROGLYCERIN [Concomitant]

REACTIONS (1)
  - BRONCHITIS [None]
